FAERS Safety Report 10096169 (Version 1)
Quarter: 2014Q2

REPORT INFORMATION
  Report Type: Spontaneous
  Country: US (occurrence: None)
  Receive Date: 20140410
  Receipt Date: 20140410
  Transmission Date: 20141212
  Serious: Yes (Other)
  Sender: FDA-Public Use
  Company Number: 2013-071

PATIENT
  Age: 33 Year
  Sex: Male

DRUGS (2)
  1. FAZACLO (CLOZAPINE, USP) ODT (ORAL DISINTEGRATING TABLET) [Suspect]
     Indication: SCHIZOPHRENIA
     Route: 048
     Dates: start: 20130111, end: 20130226
  2. SAPHRIS [Suspect]
     Indication: SCHIZOPHRENIA
     Route: 048

REACTIONS (1)
  - Agranulocytosis [None]
